FAERS Safety Report 7435361-2 (Version None)
Quarter: 2011Q2

REPORT INFORMATION
  Report Type: 
  Country: None (occurrence: None)
  Receive Date: 20110425
  Receipt Date: 20110420
  Transmission Date: 20111010
  Serious: Yes (Hospitalization)
  Sender: FDA-Public Use
  Company Number: B0712346A

PATIENT
  Sex: Female

DRUGS (2)
  1. AVANDAMET [Suspect]
     Indication: DIABETES MELLITUS
     Route: 048
     Dates: start: 20070101, end: 20080101
  2. AVANDIA [Suspect]
     Indication: DIABETES MELLITUS
     Dosage: 4MG PER DAY
     Route: 048
     Dates: start: 20011107, end: 20070101

REACTIONS (5)
  - HYPERLIPIDAEMIA [None]
  - SLEEP APNOEA SYNDROME [None]
  - HYPERTENSION [None]
  - OEDEMA [None]
  - HYPOGLYCAEMIA [None]
